FAERS Safety Report 9216994 (Version 1)
Quarter: 2013Q2

REPORT INFORMATION
  Report Type: Spontaneous
  Country: US (occurrence: US)
  Receive Date: 20130408
  Receipt Date: 20130408
  Transmission Date: 20140414
  Serious: Yes (Other)
  Sender: FDA-Public Use
  Company Number: US-PFIZER INC-2013109997

PATIENT
  Age: 76 Year
  Sex: Female
  Weight: 79.4 kg

DRUGS (2)
  1. TIKOSYN [Suspect]
     Indication: ATRIAL FIBRILLATION
     Dosage: 125 UG, 2X/DAY
     Dates: start: 20130401
  2. HYDROCHLOROTHIAZIDE [Concomitant]
     Indication: HYPERTENSION
     Dosage: UNK
     Dates: end: 20130401

REACTIONS (7)
  - Atrial fibrillation [Unknown]
  - Dyspnoea [Unknown]
  - Syncope [Unknown]
  - Wheezing [Unknown]
  - Oedema [Unknown]
  - Weight increased [Unknown]
  - Fatigue [Unknown]
